FAERS Safety Report 9009805 (Version 1)
Quarter: 2013Q1

REPORT INFORMATION
  Report Type: Spontaneous
  Country: US (occurrence: US)
  Receive Date: 20130110
  Receipt Date: 20130110
  Transmission Date: 20140127
  Serious: Yes (Hospitalization, Other)
  Sender: FDA-Public Use
  Company Number: US-009507513-0903USA00882

PATIENT
  Age: 49 Year
  Sex: Male
  Weight: 68.39 kg

DRUGS (11)
  1. SINGULAIR [Suspect]
     Dosage: 10 MG, QD
     Route: 048
     Dates: start: 2008
  2. SORIATANE [Suspect]
     Indication: PSORIASIS
     Dosage: 25 MG, QD
     Route: 048
     Dates: start: 200803, end: 20081120
  3. ADVAIR [Suspect]
     Dates: start: 2008
  4. TRICOR [Suspect]
     Dosage: 145 MG, UNK
     Dates: start: 2008
  5. LIPITOR [Suspect]
     Dosage: 40 MG, HS
     Dates: start: 2008
  6. METOPROLOL [Suspect]
     Dosage: 12.5 MG, UNK
     Dates: start: 2008
  7. PLAVIX [Suspect]
     Dosage: 75 MG, QD
     Dates: start: 2008
  8. ASPIRIN [Suspect]
     Dosage: 325 MG, UNK
     Dates: start: 2008, end: 2008
  9. ASPIRIN [Suspect]
     Dosage: 81 MG, UNK
     Dates: start: 2008
  10. ALBUTEROL [Concomitant]
  11. ZETIA [Concomitant]
     Route: 048

REACTIONS (5)
  - Weight decreased [Unknown]
  - Epistaxis [Unknown]
  - Myocardial infarction [Unknown]
  - Hypotension [Unknown]
  - Coronary artery stenosis [Unknown]
